FAERS Safety Report 8920534 (Version 3)
Quarter: 2013Q1

REPORT INFORMATION
  Report Type: Spontaneous
  Country: BR (occurrence: BR)
  Receive Date: 20121121
  Receipt Date: 20130308
  Transmission Date: 20140127
  Serious: Yes (Other)
  Sender: FDA-Public Use
  Company Number: BR-AMGEN-BRASP2012073699

PATIENT
  Age: 42 Year
  Sex: Female
  Weight: 63 kg

DRUGS (3)
  1. ENBREL [Suspect]
     Indication: PSORIATIC ARTHROPATHY
     Dosage: UNK
     Dates: start: 20121027
  2. ENBREL [Suspect]
     Dosage: 50 MG, ONCE A WEEK
     Route: 058
     Dates: start: 20130222
  3. PURAN T4 [Concomitant]
     Dosage: 100 MG, UNK

REACTIONS (5)
  - Uterine leiomyoma [Recovered/Resolved]
  - Constipation [Recovered/Resolved]
  - Abdominal distension [Recovered/Resolved]
  - Dyspepsia [Recovered/Resolved]
  - Injection site haemorrhage [Unknown]
